FAERS Safety Report 11640446 (Version 1)
Quarter: 2015Q4

REPORT INFORMATION
  Report Type: Spontaneous
  Country: TR (occurrence: TR)
  Receive Date: 20151019
  Receipt Date: 20151019
  Transmission Date: 20160304
  Serious: Yes (Hospitalization, Other)
  Sender: FDA-Public Use
  Company Number: TR-GLAXOSMITHKLINE-TR2015GSK147637

PATIENT
  Age: 19 Year
  Sex: Female

DRUGS (1)
  1. BUPROPION. [Suspect]
     Active Substance: BUPROPION

REACTIONS (10)
  - Mydriasis [Unknown]
  - Cardiac arrest [Unknown]
  - Suicide attempt [Unknown]
  - Generalised tonic-clonic seizure [Unknown]
  - Intentional overdose [Unknown]
  - Status epilepticus [Unknown]
  - Loss of consciousness [Unknown]
  - Sinus tachycardia [Unknown]
  - Unresponsive to stimuli [Unknown]
  - Confusional state [Unknown]
